FAERS Safety Report 21075265 (Version 1)
Quarter: 2022Q3

REPORT INFORMATION
  Report Type: Spontaneous
  Country: US (occurrence: US)
  Receive Date: 20220713
  Receipt Date: 20220713
  Transmission Date: 20221027
  Serious: No
  Sender: FDA-Public Use
  Company Number: US-BRISTOL-MYERS SQUIBB COMPANY-2022-069230

PATIENT
  Age: 69 Year
  Sex: Female
  Weight: 63.5 kg

DRUGS (17)
  1. REVLIMID [Suspect]
     Active Substance: LENALIDOMIDE
     Indication: Plasma cell myeloma
     Route: 048
  2. REVLIMID [Suspect]
     Active Substance: LENALIDOMIDE
     Route: 048
     Dates: start: 20210921, end: 20211019
  3. REVLIMID [Suspect]
     Active Substance: LENALIDOMIDE
     Dosage: DOSE: UNAVAILABLE?FREQUENCY: USE AS DIRECTED.
     Route: 048
     Dates: start: 20211019, end: 20211202
  4. REVLIMID [Suspect]
     Active Substance: LENALIDOMIDE
     Dosage: DOSE : UNAVAILABLE ?FREQUENCY : USE AS DIRECTED.
     Route: 048
     Dates: start: 20211202, end: 20211230
  5. REVLIMID [Suspect]
     Active Substance: LENALIDOMIDE
     Dosage: DOSE : UNAVAILABLE ?FREQUENCY : USE AS DIRECTED .
     Route: 048
     Dates: start: 20211230, end: 20220207
  6. REVLIMID [Suspect]
     Active Substance: LENALIDOMIDE
     Dosage: DOSE : UNAVAILABLE ?FREQUENCY : USE AS DIRECTED .
     Route: 048
     Dates: start: 20220207, end: 20220316
  7. REVLIMID [Suspect]
     Active Substance: LENALIDOMIDE
     Route: 048
     Dates: start: 20220316, end: 20220404
  8. ELIQUIS [Concomitant]
     Active Substance: APIXABAN
     Indication: Product used for unknown indication
     Route: 048
     Dates: start: 20210924
  9. DEXAMETHASONE [Concomitant]
     Active Substance: DEXAMETHASONE
     Indication: Product used for unknown indication
     Route: 048
     Dates: start: 20210924
  10. AMLODIPINE BESYLATE [Concomitant]
     Active Substance: AMLODIPINE BESYLATE
     Indication: Product used for unknown indication
     Route: 048
     Dates: start: 20210924
  11. DONEPEZIL HYDROCHLORIDE [Concomitant]
     Active Substance: DONEPEZIL HYDROCHLORIDE
     Indication: Product used for unknown indication
     Route: 048
     Dates: start: 20210924
  12. PANTOPRAZOLE SODIUM [Concomitant]
     Active Substance: PANTOPRAZOLE SODIUM
     Indication: Product used for unknown indication
     Route: 048
     Dates: start: 20210924
  13. ONDANSETRON HCL [Concomitant]
     Active Substance: ONDANSETRON HYDROCHLORIDE
     Indication: Product used for unknown indication
     Route: 048
     Dates: start: 20210924
  14. DICYCLOMINE HYDROCHLORIDE [Concomitant]
     Active Substance: DICYCLOMINE HYDROCHLORIDE
     Indication: Product used for unknown indication
     Route: 048
     Dates: start: 20210924
  15. OXYCODONE HYDROCHLORIDE [Concomitant]
     Active Substance: OXYCODONE HYDROCHLORIDE
     Indication: Product used for unknown indication
     Route: 048
     Dates: start: 20210924
  16. REMERON [Concomitant]
     Active Substance: MIRTAZAPINE
     Indication: Product used for unknown indication
     Dosage: FREQUENCY : NIGHT.
     Route: 048
     Dates: start: 20211104
  17. TYLENOL [Concomitant]
     Active Substance: ACETAMINOPHEN
     Dosage: FREQUENCY : AS NEEDED.
     Route: 048

REACTIONS (2)
  - Ageusia [Unknown]
  - Decreased appetite [Unknown]
